FAERS Safety Report 5594371-0 (Version None)
Quarter: 2008Q1

REPORT INFORMATION
  Report Type: 
  Country: None (occurrence: None)
  Receive Date: 20080115
  Receipt Date: 20080107
  Transmission Date: 20080703
  Serious: Yes (Other)
  Sender: FDA-Public Use
  Company Number: CHNY2008BR00479

PATIENT
  Age: 5 Year
  Sex: Male
  Weight: 23 kg

DRUGS (1)
  1. DEXTROMETHORPHAN HYDROBROMIDE [Suspect]
     Indication: COUGH
     Dosage: 2 DF, ONCE SINGLE, ORAL
     Route: 048

REACTIONS (2)
  - ANAPHYLACTIC SHOCK [None]
  - INCORRECT DOSE ADMINISTERED [None]
